FAERS Safety Report 4715065-7 (Version None)
Quarter: 2005Q2

REPORT INFORMATION
  Report Type: 
  Country: None (occurrence: None)
  Receive Date: 20050630
  Receipt Date: 20050314
  Transmission Date: 20051028
  Serious: Yes (Death)
  Sender: FDA-Public Use
  Company Number: 212855

PATIENT
  Age: 71 Year
  Sex: Male
  Weight: 52.2 kg

DRUGS (4)
  1. AVASTIN [Suspect]
     Indication: RECTAL CANCER
     Dosage: 375 MG, Q2W, INTRAVENOUS
     Route: 042
     Dates: start: 20050131
  2. 5-FU (FLUOROURACIL) [Concomitant]
  3. OXALIPLATIN (OXALIPLATIN) [Concomitant]
  4. LEUCOVORIN CALCIUM [Concomitant]

REACTIONS (2)
  - GENITAL DISORDER MALE [None]
  - RECTAL PERFORATION [None]
